FAERS Safety Report 7862546-3 (Version None)
Quarter: 2011Q4

REPORT INFORMATION
  Report Type: 
  Country: None (occurrence: None)
  Receive Date: 20111027
  Receipt Date: 20101109
  Transmission Date: 20120403
  Serious: Yes (Hospitalization)
  Sender: FDA-Public Use
  Company Number: US-AMGEN-USASP2010003978

PATIENT
  Age: 56 Year
  Sex: Female

DRUGS (1)
  1. ENBREL [Suspect]
     Indication: RHEUMATOID ARTHRITIS
     Dates: start: 20010501

REACTIONS (15)
  - WEIGHT DECREASED [None]
  - HUMAN EHRLICHIOSIS [None]
  - INJECTION SITE ERYTHEMA [None]
  - SINUSITIS [None]
  - INTERVERTEBRAL DISC DEGENERATION [None]
  - CHILLS [None]
  - NASOPHARYNGITIS [None]
  - LUMBAR SPINAL STENOSIS [None]
  - RHEUMATOID ARTHRITIS [None]
  - INJECTION SITE HAEMATOMA [None]
  - BRONCHITIS [None]
  - INJECTION SITE WARMTH [None]
  - BACK PAIN [None]
  - TEMPERATURE INTOLERANCE [None]
  - INJECTION SITE PRURITUS [None]
